FAERS Safety Report 21502283 (Version 1)
Quarter: 2022Q4

REPORT INFORMATION
  Report Type: Report from Study
  Country: DE (occurrence: DE)
  Receive Date: 20221025
  Receipt Date: 20221025
  Transmission Date: 20230112
  Serious: Yes (Death, Hospitalization)
  Sender: FDA-Public Use
  Company Number: DE-IGSA-BIG0020818

PATIENT
  Age: 57 Year
  Sex: Male

DRUGS (2)
  1. PROLASTIN [Suspect]
     Active Substance: .ALPHA.1-PROTEINASE INHIBITOR HUMAN
     Indication: Alpha-1 antitrypsin deficiency
     Dosage: 7000 MILLIGRAM, Q.WK.
     Route: 042
     Dates: start: 2021, end: 2022
  2. ACLIDINIUM BROMIDE [Concomitant]
     Active Substance: ACLIDINIUM BROMIDE

REACTIONS (2)
  - Hepatic neoplasm removal [Fatal]
  - Hepatic neoplasm [Fatal]

NARRATIVE: CASE EVENT DATE: 20220901
